FAERS Safety Report 18862467 (Version 1)
Quarter: 2021Q1

REPORT INFORMATION
  Report Type: Spontaneous
  Country: JP (occurrence: JP)
  Receive Date: 20210208
  Receipt Date: 20210208
  Transmission Date: 20210420
  Serious: Yes (Other)
  Sender: FDA-Public Use
  Company Number: JP-JUBILANT CADISTA PHARMACEUTICALS-2021JUB00025

PATIENT
  Age: 41 Year
  Sex: Male
  Weight: 53.3 kg

DRUGS (5)
  1. ITRACONAZOLE. [Suspect]
     Active Substance: ITRACONAZOLE
     Dosage: 200 UNK
     Route: 042
  2. LIPOSOMAL AMPHOTERICIN B [Concomitant]
     Active Substance: AMPHOTERICIN B
     Indication: LUNG ABSCESS
     Route: 065
  3. ITRACONAZOLE. [Suspect]
     Active Substance: ITRACONAZOLE
     Indication: LUNG ABSCESS
     Dosage: 200 MG, 1X/DAY
     Route: 065
  4. CASPOFUNGIN [Concomitant]
     Active Substance: CASPOFUNGIN
     Indication: LUNG ABSCESS
     Route: 065
  5. ITRACONAZOLE. [Suspect]
     Active Substance: ITRACONAZOLE
     Dosage: 150 MG, 1X/DAY
     Route: 042

REACTIONS (8)
  - Cardiac failure congestive [Unknown]
  - Fatigue [Unknown]
  - Respiratory distress [Unknown]
  - Anaemia [Unknown]
  - Toxicity to various agents [Unknown]
  - Pneumonia [Unknown]
  - Hepatic function abnormal [Unknown]
  - Cardiomegaly [Unknown]
